FAERS Safety Report 14372497 (Version 1)
Quarter: 2018Q1

REPORT INFORMATION
  Report Type: Spontaneous
  Country: US (occurrence: US)
  Receive Date: 20180110
  Receipt Date: 20180110
  Transmission Date: 20180509
  Serious: Yes (Death, Other)
  Sender: FDA-Public Use
  Company Number: US-GLAXOSMITHKLINE-US2018GSK003361

PATIENT
  Age: 92 Year
  Sex: Female

DRUGS (1)
  1. PREVACID [Suspect]
     Active Substance: LANSOPRAZOLE
     Indication: PEPTIC ULCER
     Dosage: UNK
     Route: 065
     Dates: start: 2012, end: 201606

REACTIONS (2)
  - Chronic kidney disease [Unknown]
  - Death [Fatal]

NARRATIVE: CASE EVENT DATE: 20160120
